FAERS Safety Report 5159248-3 (Version None)
Quarter: 2006Q4

REPORT INFORMATION
  Report Type: 
  Country: None (occurrence: None)
  Receive Date: 20061120
  Receipt Date: 20061103
  Transmission Date: 20070319
  Serious: Yes (Life-Threatening, Congenital Anomaly)
  Sender: FDA-Public Use
  Company Number: IND-AE-06-SAN-046

PATIENT
  Age: 26 Week

DRUGS (6)
  1. CERIS (TROSPIUM CHLORIDE) MADAUS [Suspect]
     Indication: URINARY INCONTINENCE
     Dosage: ORAL
     Route: 048
     Dates: start: 20051015, end: 20060410
  2. AUGMENTIN '125' [Concomitant]
  3. PREDNISOLONE [Concomitant]
  4. GADOLINIUM DTPA [Concomitant]
  5. EFFEXOR [Concomitant]
  6. NICOPATCH (NICOTINE) [Concomitant]

REACTIONS (6)
  - CONGENITAL TRICUSPID VALVE ATRESIA [None]
  - DRUG EXPOSURE DURING PREGNANCY [None]
  - FOETAL CARDIAC DISORDER [None]
  - FOETAL GROWTH RETARDATION [None]
  - PULMONARY VALVE STENOSIS CONGENITAL [None]
  - VENTRICULAR SEPTAL DEFECT [None]
